FAERS Safety Report 7804012-7 (Version None)
Quarter: 2011Q4

REPORT INFORMATION
  Report Type: 
  Country: None (occurrence: None)
  Receive Date: 20111010
  Receipt Date: 20110929
  Transmission Date: 20120403
  Serious: Yes (Other)
  Sender: FDA-Public Use
  Company Number: US-JNJFOC-20110810510

PATIENT
  Sex: Female

DRUGS (8)
  1. REMICADE [Suspect]
     Indication: FISTULA
     Dosage: HAD 3 INDUCTION DOSES
     Route: 042
     Dates: start: 20110701, end: 20110801
  2. REMICADE [Suspect]
     Indication: CROHN'S DISEASE
     Dosage: HAD 3 INDUCTION DOSES
     Route: 042
     Dates: start: 20110701, end: 20110801
  3. AUGMENTIN '125' [Concomitant]
     Indication: ABSCESS
     Route: 065
     Dates: start: 20110501
  4. ENTOCORT EC [Concomitant]
     Indication: CROHN'S DISEASE
     Route: 065
     Dates: start: 20110501
  5. AUGMENTIN '125' [Concomitant]
     Indication: FISTULA
     Route: 065
     Dates: start: 20110501
  6. ENTOCORT EC [Concomitant]
     Route: 065
     Dates: start: 20110601
  7. AUGMENTIN '125' [Concomitant]
     Route: 065
     Dates: start: 20110601
  8. AUGMENTIN '125' [Concomitant]
     Route: 065
     Dates: start: 20110601

REACTIONS (1)
  - VISUAL FIELD DEFECT [None]
